FAERS Safety Report 4635927-9 (Version None)
Quarter: 2005Q2

REPORT INFORMATION
  Report Type: 
  Country: None (occurrence: None)
  Receive Date: 20050415
  Receipt Date: 20040811
  Transmission Date: 20051028
  Serious: Yes (Other)
  Sender: FDA-Public Use
  Company Number: PHFR2004GB04748

PATIENT
  Sex: Male

DRUGS (1)
  1. LAMISIL [Suspect]

REACTIONS (1)
  - PSYCHOTIC DISORDER [None]
